FAERS Safety Report 8113867-0 (Version None)
Quarter: 2012Q1

REPORT INFORMATION
  Report Type: 
  Country: None (occurrence: None)
  Receive Date: 20120127
  Receipt Date: 20110225
  Transmission Date: 20120608
  Serious: No
  Sender: FDA-Public Use
  Company Number: US-ABBOTT-11P-163-0708142-00

PATIENT
  Sex: Female
  Weight: 72.64 kg

DRUGS (3)
  1. HYDROCODONE BITARTRATE [Concomitant]
     Indication: ARTHRALGIA
     Dosage: UNKNOWN STRENGTH; AS NEEDED
     Route: 048
  2. HUMIRA [Suspect]
     Indication: OSTEOARTHRITIS
     Route: 058
     Dates: start: 20100101, end: 20110201
  3. VOLTAREN [Suspect]
     Indication: OSTEOARTHRITIS
     Dosage: UNKNOWN STRENGTH
     Route: 048
     Dates: end: 20100101

REACTIONS (4)
  - ARTHRALGIA [None]
  - INFLUENZA [None]
  - NAUSEA [None]
  - GASTROINTESTINAL ULCER [None]
